FAERS Safety Report 8722130 (Version 2)
Quarter: 2012Q4

REPORT INFORMATION
  Report Type: 
  Country: US (occurrence: US)
  Receive Date: 20120814
  Receipt Date: 20120918
  Transmission Date: 20130627
  Serious: No
  Sender: FDA-Public Use
  Company Number: US-ELI_LILLY_AND_COMPANY-US201208001639

PATIENT
  Age: 46 None
  Sex: Female

DRUGS (5)
  1. CYMBALTA [Suspect]
     Indication: DEPRESSION
     Dosage: 30 mg, unknown
     Route: 065
     Dates: start: 2002
  2. FENTANYL [Concomitant]
     Dosage: 100mg, UNK
     Route: 062
  3. SOMA [Concomitant]
     Dosage: Unk, unk
  4. AMLODIPINE [Concomitant]
  5. NICOTINE [Concomitant]

REACTIONS (14)
  - Blood alkaline phosphatase increased [Unknown]
  - Hypertension [Not Recovered/Not Resolved]
  - Abnormal dreams [Not Recovered/Not Resolved]
  - Palpitations [Not Recovered/Not Resolved]
  - Fear [Not Recovered/Not Resolved]
  - Abdominal pain upper [Not Recovered/Not Resolved]
  - Back pain [Not Recovered/Not Resolved]
  - Haemorrhage subcutaneous [Not Recovered/Not Resolved]
  - Intentional drug misuse [Unknown]
  - Blood glucose decreased [Unknown]
  - Oedema peripheral [Not Recovered/Not Resolved]
  - Nausea [Not Recovered/Not Resolved]
  - Confusional state [Not Recovered/Not Resolved]
  - Insomnia [Not Recovered/Not Resolved]
